FAERS Safety Report 14149761 (Version 2)
Quarter: 2017Q4

REPORT INFORMATION
  Report Type: Spontaneous
  Country: IT (occurrence: IT)
  Receive Date: 20171101
  Receipt Date: 20171221
  Transmission Date: 20180321
  Serious: Yes (Hospitalization)
  Sender: FDA-Public Use
  Company Number: PHHY2017IT160048

PATIENT
  Age: 2 Year
  Sex: Male

DRUGS (1)
  1. ACETYLSALICYLIC ACID [Suspect]
     Active Substance: ASPIRIN
     Indication: NASOPHARYNGITIS
     Dosage: 100 MG, QD
     Route: 065

REACTIONS (4)
  - Rash [Recovered/Resolved]
  - Blister [Recovered/Resolved]
  - Skin lesion [Recovered/Resolved]
  - Linear IgA disease [Recovered/Resolved]
